FAERS Safety Report 23206329 (Version 1)
Quarter: 2023Q4

REPORT INFORMATION
  Report Type: Spontaneous
  Country: CH (occurrence: CH)
  Receive Date: 20231120
  Receipt Date: 20231120
  Transmission Date: 20240110
  Serious: Yes (Other)
  Sender: FDA-Public Use
  Company Number: CH-AFAXYS PHARMA, LLC-2023AFX00022

PATIENT
  Age: 54 Year
  Sex: Male

DRUGS (4)
  1. LIDOCAINE [Suspect]
     Active Substance: LIDOCAINE
     Indication: Cataract operation
     Dosage: UNK
     Dates: start: 20221101, end: 20221101
  2. LIDOCAINE [Suspect]
     Active Substance: LIDOCAINE
     Dosage: UNK
     Dates: start: 20221110, end: 20221110
  3. CEFUROXIME SODIUM [Suspect]
     Active Substance: CEFUROXIME SODIUM
     Indication: Cataract operation
     Dosage: UNK
     Dates: start: 20221101, end: 20221101
  4. CEFUROXIME SODIUM [Suspect]
     Active Substance: CEFUROXIME SODIUM
     Dosage: UNK
     Dates: start: 20221110, end: 20221110

REACTIONS (1)
  - Blindness [Recovering/Resolving]

NARRATIVE: CASE EVENT DATE: 20221101
